FAERS Safety Report 4727341-2 (Version None)
Quarter: 2005Q3

REPORT INFORMATION
  Report Type: 
  Country: None (occurrence: None)
  Receive Date: 20050727
  Receipt Date: 20050727
  Transmission Date: 20060218
  Serious: Yes (Hospitalization)
  Sender: FDA-Public Use
  Company Number: None

PATIENT
  Age: 72 Year
  Sex: Male
  Weight: 85.2762 kg

DRUGS (12)
  1. WARFARIN [Suspect]
     Indication: MITRAL VALVE INCOMPETENCE
     Dosage: 2MG MWF 2.5MG TTSS
     Route: 065
  2. WARFARIN [Suspect]
     Indication: TRANSIENT ISCHAEMIC ATTACK
     Dosage: 2MG MWF 2.5MG TTSS
     Route: 065
  3. AZITHROMYCIN [Suspect]
     Indication: PNEUMONIA
     Dosage: DAILY X 7 DAYS
     Route: 065
     Dates: start: 20050323, end: 20050329
  4. PREDNISONE [Concomitant]
  5. ZITHROMAX [Concomitant]
  6. SPIRIVA [Concomitant]
  7. ALBUTEROL [Concomitant]
  8. CARDIZEM [Concomitant]
  9. LISINOPRIL [Concomitant]
  10. ZOCOR [Concomitant]
  11. LASIX [Concomitant]
  12. WARFARIN [Concomitant]

REACTIONS (5)
  - ANAEMIA [None]
  - ANTICOAGULATION DRUG LEVEL ABOVE THERAPEUTIC [None]
  - FAECES DISCOLOURED [None]
  - INTERNATIONAL NORMALISED RATIO INCREASED [None]
  - UPPER GASTROINTESTINAL HAEMORRHAGE [None]
